FAERS Safety Report 20833376 (Version 1)
Quarter: 2022Q2

REPORT INFORMATION
  Report Type: Spontaneous
  Country: US (occurrence: None)
  Receive Date: 20220516
  Receipt Date: 20220516
  Transmission Date: 20220721
  Serious: Yes (Hospitalization, Other)
  Sender: FDA-Public Use
  Company Number: US-MICRO LABS LIMITED-ML2022-02058

PATIENT
  Sex: Male

DRUGS (12)
  1. ACETAZOLAMIDE [Suspect]
     Active Substance: ACETAZOLAMIDE
  2. CLOBAZAM [Suspect]
     Active Substance: CLOBAZAM
  3. VALPROIC ACID [Suspect]
     Active Substance: VALPROIC ACID
     Indication: Epileptic encephalopathy
  4. OXCARBAZEPINE [Suspect]
     Active Substance: OXCARBAZEPINE
  5. RUFINAMIDE [Suspect]
     Active Substance: RUFINAMIDE
  6. CANNABIDIOL [Suspect]
     Active Substance: CANNABIDIOL
  7. ZONISAMIDE [Suspect]
     Active Substance: ZONISAMIDE
  8. CLONAZEPAM [Suspect]
     Active Substance: CLONAZEPAM
  9. TOPIRAMATE [Suspect]
     Active Substance: TOPIRAMATE
  10. LACOSAMIDE [Suspect]
     Active Substance: LACOSAMIDE
  11. IRON [Suspect]
     Active Substance: IRON
  12. DESIPRAMINE [Suspect]
     Active Substance: DESIPRAMINE

REACTIONS (2)
  - Hyperammonaemic encephalopathy [Unknown]
  - Drug ineffective [Unknown]
